FAERS Safety Report 11421493 (Version 2)
Quarter: 2015Q3

REPORT INFORMATION
  Report Type: Report from Study
  Country: KR (occurrence: KR)
  Receive Date: 20150826
  Receipt Date: 20150901
  Transmission Date: 20151125
  Serious: No
  Sender: FDA-Public Use
  Company Number: PHHY2015KR100434

PATIENT
  Age: 47 Year
  Sex: Female

DRUGS (2)
  1. TASIGNA [Suspect]
     Active Substance: NILOTINIB
     Indication: CHRONIC MYELOID LEUKAEMIA
     Dosage: 600 MG, BID
     Route: 048
     Dates: start: 20140731, end: 201508
  2. SYNTHROID [Concomitant]
     Active Substance: LEVOTHYROXINE SODIUM
     Indication: THYROID CANCER
     Dosage: UNK
     Route: 048
     Dates: start: 2012

REACTIONS (6)
  - Nasopharyngitis [Recovered/Resolved]
  - Rash generalised [Not Recovered/Not Resolved]
  - Hepatic enzyme increased [Recovered/Resolved]
  - Oropharyngeal pain [Unknown]
  - Pruritus generalised [Not Recovered/Not Resolved]
  - Swelling [Unknown]

NARRATIVE: CASE EVENT DATE: 201503
